FAERS Safety Report 9860896 (Version 1)
Quarter: 2014Q1

REPORT INFORMATION
  Report Type: Spontaneous
  Country: IT (occurrence: None)
  Receive Date: 20140130
  Receipt Date: 20140130
  Transmission Date: 20141002
  Serious: Yes (Other)
  Sender: FDA-Public Use
  Company Number: FK201400243

PATIENT
  Age: 66 Year
  Sex: Female

DRUGS (6)
  1. GEMCITABINE [Suspect]
     Indication: PANCREATIC CARCINOMA
     Dosage: 1000 MG/M2, DAYS 1,8,15
     Dates: start: 201003, end: 201009
  2. PACLITAXEL [Suspect]
     Indication: METASTASES TO PERITONEUM
  3. INSULIN (INSULIN) [Concomitant]
  4. ALDACTONE (SPIRONOLACTONE) [Concomitant]
  5. DILATREND (CARVEDILOL) [Concomitant]
  6. CARDIOASPIRIN (ACETYLSALICYLIC ACID) [Concomitant]

REACTIONS (9)
  - Capillary leak syndrome [None]
  - Pleural effusion [None]
  - Ascites [None]
  - Generalised oedema [None]
  - Pulmonary hypertension [None]
  - Renal failure [None]
  - Pulmonary oedema [None]
  - Fibrin D dimer increased [None]
  - Acute respiratory distress syndrome [None]
